FAERS Safety Report 4945954-X (Version None)
Quarter: 2006Q1

REPORT INFORMATION
  Report Type: 
  Country: None (occurrence: None)
  Receive Date: 20060127
  Receipt Date: 20051222
  Transmission Date: 20060701
  Serious: No
  Sender: FDA-Public Use
  Company Number: CLOF-10178

PATIENT
  Age: 12 Year
  Sex: Female
  Weight: 38.5557 kg

DRUGS (3)
  1. CLOFARABINE [Suspect]
     Indication: ACUTE LYMPHOCYTIC LEUKAEMIA
     Dates: start: 20051213, end: 20051218
  2. ANTIBIOTICS [Concomitant]
  3. FUNGICIDE [Concomitant]

REACTIONS (2)
  - HEPATOTOXICITY [None]
  - WHITE BLOOD CELL COUNT DECREASED [None]
